FAERS Safety Report 7603525-0 (Version None)
Quarter: 2011Q3

REPORT INFORMATION
  Report Type: 
  Country: None (occurrence: None)
  Receive Date: 20110712
  Receipt Date: 20110630
  Transmission Date: 20111222
  Serious: Yes (Other)
  Sender: FDA-Public Use
  Company Number: BR-SANOFI-AVENTIS-2011SA041830

PATIENT
  Sex: Female
  Weight: 65 kg

DRUGS (4)
  1. AUTOPEN 24 [Suspect]
  2. HUMALOG [Concomitant]
     Dosage: GIVEN ACCORDING TO GLYCEMIA (NOS)
     Route: 058
     Dates: start: 20030101
  3. METFORMIN HCL [Concomitant]
     Route: 048
  4. LANTUS [Suspect]
     Route: 058
     Dates: start: 20030101

REACTIONS (4)
  - RETINAL DISORDER [None]
  - ADVERSE REACTION [None]
  - GLAUCOMA [None]
  - RETINAL DETACHMENT [None]
